FAERS Safety Report 20610835 (Version 1)
Quarter: 2022Q1

REPORT INFORMATION
  Report Type: Spontaneous
  Country: US (occurrence: None)
  Receive Date: 20220317
  Receipt Date: 20220317
  Transmission Date: 20220423
  Serious: Yes (Hospitalization)
  Sender: FDA-Public Use
  Company Number: None

PATIENT
  Sex: Female

DRUGS (1)
  1. DALFAMPRIDINE [Suspect]
     Active Substance: DALFAMPRIDINE
     Indication: Multiple sclerosis
     Dosage: 10MG TWICE DAILY ORAL
     Route: 048
     Dates: start: 201811

REACTIONS (2)
  - Fall [None]
  - Traumatic intracranial haemorrhage [None]

NARRATIVE: CASE EVENT DATE: 20210901
